FAERS Safety Report 15385519 (Version 1)
Quarter: 2018Q3

REPORT INFORMATION
  Report Type: Spontaneous
  Country: IL (occurrence: IL)
  Receive Date: 20180914
  Receipt Date: 20180914
  Transmission Date: 20181010
  Serious: Yes (Death)
  Sender: FDA-Public Use
  Company Number: IL-BAYER-2018-172024

PATIENT
  Sex: Male

DRUGS (4)
  1. XOFIGO [Suspect]
     Active Substance: RADIUM RA-223 DICHLORIDE
     Dosage: 1 DF, ONCE
     Route: 042
     Dates: start: 20180801, end: 20180801
  2. XOFIGO [Suspect]
     Active Substance: RADIUM RA-223 DICHLORIDE
     Dosage: 1 DF, ONCE
     Route: 042
     Dates: start: 20180530, end: 20180530
  3. XOFIGO [Suspect]
     Active Substance: RADIUM RA-223 DICHLORIDE
     Dosage: 1 DF, ONCE
     Route: 042
     Dates: start: 20180829, end: 20180829
  4. XOFIGO [Suspect]
     Active Substance: RADIUM RA-223 DICHLORIDE
     Dosage: 1 DF, ONCE
     Route: 042
     Dates: start: 20180704, end: 20180704

REACTIONS (1)
  - Death [Fatal]

NARRATIVE: CASE EVENT DATE: 2018
